FAERS Safety Report 9213045 (Version 2)
Quarter: 2013Q2

REPORT INFORMATION
  Report Type: Spontaneous
  Country: US (occurrence: US)
  Receive Date: 20130405
  Receipt Date: 20130502
  Transmission Date: 20140414
  Serious: Yes (Other)
  Sender: FDA-Public Use
  Company Number: US-AMGEN-USASP2013022561

PATIENT
  Age: 64 Year
  Sex: Female

DRUGS (1)
  1. SENSIPAR [Suspect]
     Indication: HYPERPARATHYROIDISM PRIMARY
     Dosage: 60 MG, QD

REACTIONS (9)
  - Renal impairment [Unknown]
  - Pain in extremity [Unknown]
  - Calcium ionised abnormal [Unknown]
  - Blood calcium abnormal [Unknown]
  - Blood phosphorus abnormal [Unknown]
  - Malaise [Unknown]
  - Blood parathyroid hormone abnormal [Unknown]
  - Headache [Not Recovered/Not Resolved]
  - Muscle spasms [Unknown]
